FAERS Safety Report 7241145-0 (Version None)
Quarter: 2011Q1

REPORT INFORMATION
  Report Type: 
  Country: None (occurrence: None)
  Receive Date: 20110124
  Receipt Date: 20110118
  Transmission Date: 20110831
  Serious: Yes (Hospitalization)
  Sender: FDA-Public Use
  Company Number: US-ROCHE-675065

PATIENT
  Sex: Male
  Weight: 85.3 kg

DRUGS (6)
  1. PREVACID [Concomitant]
  2. RIBAVIRIN [Suspect]
     Dosage: FORM REPORTED AS PILLS. DRUG WAS PERMANENTLY DISCONTINUED.
     Route: 048
     Dates: start: 20080928, end: 20081103
  3. INDERAL [Concomitant]
  4. FLAGYL [Concomitant]
     Dates: start: 20081101
  5. PEGINTERFERON ALFA-2A [Suspect]
     Dosage: FORM: INJECTABLE SOLUTION. DRUG PERMANENTLY DISCONTINUED. LAST DOSE PRIOR TO SAE: 02 NOVEMBER 2009.
     Route: 058
     Dates: start: 20080928, end: 20081103
  6. AVELOX [Concomitant]
     Dates: start: 20081101

REACTIONS (1)
  - NEPHROLITHIASIS [None]
